FAERS Safety Report 5749552-X (Version None)
Quarter: 2008Q2

REPORT INFORMATION
  Report Type: 
  Country: None (occurrence: None)
  Receive Date: 20080520
  Receipt Date: 20080520
  Transmission Date: 20081010
  Serious: No
  Sender: FDA-Public Use
  Company Number: None

PATIENT
  Age: 63 Year
  Sex: Male
  Weight: 60 kg

DRUGS (2)
  1. PHENYTOIN [Suspect]
     Indication: CONVULSION PROPHYLAXIS
     Dosage: 300 MG AT BEDTIME PO
     Route: 048
     Dates: start: 20080222, end: 20080516
  2. PHENYTOIN [Suspect]
     Indication: SUBDURAL HAEMATOMA
     Dosage: 300 MG AT BEDTIME PO
     Route: 048
     Dates: start: 20080222, end: 20080516

REACTIONS (3)
  - DIZZINESS [None]
  - DRUG TOXICITY [None]
  - MENTAL STATUS CHANGES [None]
